FAERS Safety Report 14426183 (Version 1)
Quarter: 2018Q1

REPORT INFORMATION
  Report Type: Spontaneous
  Country: US (occurrence: US)
  Receive Date: 20180123
  Receipt Date: 20180123
  Transmission Date: 20180509
  Serious: No
  Sender: FDA-Public Use
  Company Number: US-ELI_LILLY_AND_COMPANY-US201801007643

PATIENT
  Age: 49 Year
  Sex: Male

DRUGS (4)
  1. LYRICA [Suspect]
     Active Substance: PREGABALIN
     Indication: HEADACHE
     Dosage: 150 MG, BID (60 CAPSULES IN BOTTLE) (INCREASED DOSE NOT STARTED YET)
     Route: 048
     Dates: start: 20171226
  2. LYRICA [Suspect]
     Active Substance: PREGABALIN
     Indication: NECK PAIN
     Dosage: 100 MG, BID (60 CAPSULES IN BOTTLE)
     Route: 048
     Dates: start: 2015
  3. CYMBALTA [Suspect]
     Active Substance: DULOXETINE HYDROCHLORIDE
     Indication: ARTHRALGIA
     Dosage: 30 MG, EACH MORNING (FOR TOTAL DOSE OF 90 MG)
     Route: 048
     Dates: start: 2015
  4. CYMBALTA [Suspect]
     Active Substance: DULOXETINE HYDROCHLORIDE
     Dosage: 60 MG, EACH MORNING (FOR TOTAL DOSE OF 90 MG)
     Route: 048
     Dates: start: 2015

REACTIONS (3)
  - Arthritis [Not Recovered/Not Resolved]
  - Stenosis [Not Recovered/Not Resolved]
  - Migraine [Not Recovered/Not Resolved]

NARRATIVE: CASE EVENT DATE: 20171222
